FAERS Safety Report 17389006 (Version 4)
Quarter: 2022Q1

REPORT INFORMATION
  Report Type: Spontaneous
  Country: PT (occurrence: PT)
  Receive Date: 20200206
  Receipt Date: 20220314
  Transmission Date: 20220423
  Serious: Yes (Life-Threatening, Hospitalization, Other)
  Sender: FDA-Public Use
  Company Number: PT-SA-2019SA205450

PATIENT
  Age: 17 Year
  Sex: Female

DRUGS (16)
  1. ACETAMINOPHEN [Interacting]
     Active Substance: ACETAMINOPHEN
     Indication: Product used for unknown indication
     Dosage: UNK
     Route: 065
  2. IBUPROFEN [Interacting]
     Active Substance: IBUPROFEN
     Indication: Product used for unknown indication
     Dosage: 1.5 GRAM
     Route: 048
  3. EPINEPHRINE [Suspect]
     Active Substance: EPINEPHRINE
     Indication: Cardio-respiratory arrest
     Dosage: 0.15-0.3 ?G/KG/MIN
     Route: 065
  4. EPINEPHRINE [Suspect]
     Active Substance: EPINEPHRINE
     Dosage: 0.6 MICROGRAM/KILOGRAM,0.6 ?G/KG, Z (PER MIN)
     Route: 065
  5. ATROPINE [Suspect]
     Active Substance: ATROPINE
     Indication: Cardiovascular disorder
     Dosage: UNK
     Route: 065
  6. ATROPINE [Suspect]
     Active Substance: ATROPINE
     Indication: Cardio-respiratory arrest
  7. DOPAMINE [Suspect]
     Active Substance: DOPAMINE HYDROCHLORIDE
     Indication: Cardiovascular disorder
     Dosage: 7.5 MICROGRAM/KILOGRAM, UPTO 7.5 ?G/KG, Z (PER MIN)
     Route: 065
  8. DOPAMINE [Suspect]
     Active Substance: DOPAMINE HYDROCHLORIDE
     Indication: Haemodynamic instability
     Dosage: 1 MICROGRAM/KILOGRAM
     Route: 065
  9. PROPAFENONE [Interacting]
     Active Substance: PROPAFENONE
     Indication: Product used for unknown indication
     Dosage: 6 GRAM
     Route: 048
  10. SODIUM BICARBONATE [Suspect]
     Active Substance: SODIUM BICARBONATE
     Indication: Metabolic acidosis
     Dosage: 1 MEQ, Z (/KG/H)
     Route: 065
  11. PHENOBARBITAL [Concomitant]
     Active Substance: PHENOBARBITAL
     Indication: Seizure
     Dosage: UNK
     Route: 065
  12. MIDAZOLAM [Concomitant]
     Active Substance: MIDAZOLAM
     Indication: Seizure
     Dosage: UNK
     Route: 065
  13. EPINEPHRINE BITARTRATE [Concomitant]
     Active Substance: EPINEPHRINE BITARTRATE
     Indication: Cardiovascular disorder
     Dosage: UNK
     Route: 065
  14. PHENYTOIN [Concomitant]
     Active Substance: PHENYTOIN
     Indication: Seizure
     Dosage: UNK
     Route: 065
  15. CHARCOAL ACTIVATED [Concomitant]
     Active Substance: ACTIVATED CHARCOAL
     Indication: Product used for unknown indication
     Dosage: 50 GRAM
     Route: 065
  16. NOREPINEPHRINE [Concomitant]
     Active Substance: NOREPINEPHRINE
     Indication: Cardiovascular disorder
     Dosage: UNK
     Route: 065

REACTIONS (30)
  - Cardiac arrest [Recovered/Resolved]
  - Shock [Recovered/Resolved]
  - Poor peripheral circulation [Recovered/Resolved]
  - Coma [Recovered/Resolved]
  - Systolic dysfunction [Recovered/Resolved]
  - Myocardial ischaemia [Recovered/Resolved]
  - Acute kidney injury [Recovered/Resolved]
  - Coma scale abnormal [Recovered/Resolved]
  - Sinus bradycardia [Recovered/Resolved]
  - N-terminal prohormone brain natriuretic peptide increased [Recovered/Resolved]
  - Troponin I increased [Recovered/Resolved]
  - Drug interaction [Recovered/Resolved]
  - Partial seizures [Recovered/Resolved]
  - Seizure [Recovered/Resolved]
  - Generalised tonic-clonic seizure [Recovered/Resolved]
  - Haemodynamic instability [Recovered/Resolved]
  - Metabolic acidosis [Recovered/Resolved]
  - Diastolic dysfunction [Recovered/Resolved]
  - Toxicity to various agents [Unknown]
  - Bradycardia [Recovered/Resolved]
  - Alanine aminotransferase increased [Recovered/Resolved]
  - Cardio-respiratory arrest [Recovered/Resolved]
  - Therapy non-responder [Unknown]
  - Intentional overdose [Recovered/Resolved]
  - Myocardial necrosis marker increased [Recovered/Resolved]
  - Cardiac assistance device user [Recovered/Resolved]
  - Ischaemic hepatitis [Recovered/Resolved]
  - Cardiogenic shock [Recovered/Resolved]
  - Renal injury [Recovered/Resolved]
  - Enzyme induction [Unknown]
